FAERS Safety Report 4267210-8 (Version None)
Quarter: 2004Q1

REPORT INFORMATION
  Report Type: 
  Country: None (occurrence: None)
  Receive Date: 20040107
  Receipt Date: 20031218
  Transmission Date: 20041129
  Serious: Yes (Hospitalization)
  Sender: FDA-Public Use
  Company Number: CPVP2003JPN4637

PATIENT
  Age: 70 Year
  Sex: Male

DRUGS (1)
  1. MIDODRINE HCL [Suspect]
     Indication: SYNCOPE
     Dosage: 4 MG (2 MG, 2 IN 1 D)
     Route: 048
     Dates: start: 20031016, end: 20031023

REACTIONS (4)
  - DYSURIA [None]
  - HEADACHE [None]
  - HYPONATRAEMIA [None]
  - INAPPROPRIATE ANTIDIURETIC HORMONE SECRETION [None]
